FAERS Safety Report 5851250-9 (Version None)
Quarter: 2008Q3

REPORT INFORMATION
  Report Type: 
  Country: None (occurrence: None)
  Receive Date: 20080731
  Receipt Date: 20080423
  Transmission Date: 20090109
  Serious: No
  Sender: FDA-Public Use
  Company Number: US200804002215

PATIENT
  Age: 58 Year
  Sex: Male
  Weight: 157.4 kg

DRUGS (4)
  1. BYETTA [Suspect]
     Indication: INSULIN-REQUIRING TYPE 2 DIABETES MELLITUS
     Dosage: 5 UG, 2/D, SUBCUTANEOUS ; 10 UG, 2/D, SUBCUTANEOUS ; 20 UG, 2/D, SUBCUTANEOUS
     Route: 058
     Dates: end: 20071001
  2. BYETTA [Suspect]
     Indication: INSULIN-REQUIRING TYPE 2 DIABETES MELLITUS
     Dosage: 5 UG, 2/D, SUBCUTANEOUS ; 10 UG, 2/D, SUBCUTANEOUS ; 20 UG, 2/D, SUBCUTANEOUS
     Route: 058
     Dates: start: 20060101
  3. LANTUS [Concomitant]
  4. NOVOLOG [Concomitant]

REACTIONS (3)
  - BLOOD GLUCOSE INCREASED [None]
  - OVERDOSE [None]
  - WEIGHT INCREASED [None]
